FAERS Safety Report 8038168-0 (Version None)
Quarter: 2012Q1

REPORT INFORMATION
  Report Type: 
  Country: None (occurrence: None)
  Receive Date: 20120111
  Receipt Date: 20111202
  Transmission Date: 20120608
  Serious: No
  Sender: FDA-Public Use
  Company Number: US-AMGEN-USASP2011063961

PATIENT
  Sex: Male

DRUGS (1)
  1. ENBREL [Suspect]
     Indication: RHEUMATOID ARTHRITIS
     Dosage: 25 MG, Q3WK
     Dates: start: 20030101, end: 20090101

REACTIONS (3)
  - INFLUENZA LIKE ILLNESS [None]
  - FOOD ALLERGY [None]
  - RHEUMATOID ARTHRITIS [None]
